FAERS Safety Report 16078839 (Version 2)
Quarter: 2019Q3

REPORT INFORMATION
  Report Type: Spontaneous
  Country: US (occurrence: US)
  Receive Date: 20190315
  Receipt Date: 20190904
  Transmission Date: 20191004
  Serious: No
  Sender: FDA-Public Use
  Company Number: US-PFIZER INC-2019105142

PATIENT
  Age: 39 Year
  Sex: Female
  Weight: 77.11 kg

DRUGS (1)
  1. HEPARIN SODIUM. [Suspect]
     Active Substance: HEPARIN SODIUM
     Dosage: UNK, (25000 UNITS IV BAG)
     Route: 042

REACTIONS (3)
  - Activated partial thromboplastin time prolonged [Unknown]
  - Poor quality product administered [Unknown]
  - Product leakage [Unknown]

NARRATIVE: CASE EVENT DATE: 20190305
